FAERS Safety Report 6201752-0 (Version None)
Quarter: 2009Q2

REPORT INFORMATION
  Report Type: 
  Country: None (occurrence: None)
  Receive Date: 20090526
  Receipt Date: 20090515
  Transmission Date: 20091009
  Serious: Yes (Hospitalization)
  Sender: FDA-Public Use
  Company Number: US-AMGEN-US155740

PATIENT
  Sex: Male

DRUGS (15)
  1. PANITUMUMAB [Suspect]
     Indication: COLORECTAL CANCER
     Route: 042
     Dates: start: 20050630
  2. AVASTIN [Concomitant]
     Route: 042
  3. OXALIPLATIN [Concomitant]
     Route: 042
  4. FLUOROURACIL [Concomitant]
     Route: 042
  5. LEUCOVORIN CALCIUM [Concomitant]
     Route: 042
  6. LEXAPRO [Concomitant]
  7. TOPROL-XL [Concomitant]
  8. K-DUR [Concomitant]
  9. ASPIRIN [Concomitant]
  10. LAXATIVES [Concomitant]
  11. ANUSOL [Concomitant]
  12. MULTI-VITAMINS [Concomitant]
  13. CALCIUM [Concomitant]
  14. BENADRYL [Concomitant]
  15. MYCELEX [Concomitant]

REACTIONS (3)
  - ATRIAL FIBRILLATION [None]
  - CARDIAC FAILURE CONGESTIVE [None]
  - PERICARDIAL EFFUSION [None]
